FAERS Safety Report 9415222 (Version 1)
Quarter: 2013Q3

REPORT INFORMATION
  Report Type: Spontaneous
  Country: US (occurrence: US)
  Receive Date: 20130723
  Receipt Date: 20130723
  Transmission Date: 20140515
  Serious: No
  Sender: FDA-Public Use
  Company Number: US-BAYER-2013-088257

PATIENT
  Age: 66 Year
  Sex: Female
  Weight: 86.17 kg

DRUGS (5)
  1. BAYER AM EXTRA STENGTH [Suspect]
     Indication: ARTHRITIS
     Dosage: 2 DF, BID
     Route: 048
  2. BAYER EXTRA STRENGTH BACK + BODY PAIN [Suspect]
     Indication: ARTHRITIS
     Route: 048
  3. ALEVE CAPLET [Suspect]
  4. TRIGLYCERIDES [Concomitant]
  5. BAYER ASPIRIN REGIMEN ADULT LOW STRENGTH [Concomitant]
     Dosage: 1 DF, QD
     Route: 048

REACTIONS (2)
  - Drug ineffective [None]
  - Abdominal pain upper [Recovered/Resolved]
